FAERS Safety Report 8277809-X (Version None)
Quarter: 2012Q1

REPORT INFORMATION
  Report Type: 
  Country: None (occurrence: None)
  Receive Date: 20120312
  Receipt Date: 20120208
  Transmission Date: 20120608
  Serious: No
  Sender: FDA-Public Use
  Company Number: 2012SP007611

PATIENT
  Age: 27 Year
  Sex: Male

DRUGS (4)
  1. SAPHRIS [Suspect]
     Indication: ANXIETY
     Dosage: 10 MG, QD, SL
     Route: 060
     Dates: start: 20110101
  2. SAPHRIS [Suspect]
     Indication: BIPOLAR DISORDER
     Dosage: 10 MG, QD, SL
     Route: 060
     Dates: start: 20110101
  3. PROZAC [Concomitant]
  4. TRAZODONE HCL [Concomitant]

REACTIONS (2)
  - WEIGHT INCREASED [None]
  - INAPPROPRIATE SCHEDULE OF DRUG ADMINISTRATION [None]
